FAERS Safety Report 9503363 (Version 2)
Quarter: 2013Q3

REPORT INFORMATION
  Report Type: Spontaneous
  Country: US (occurrence: US)
  Receive Date: 20130906
  Receipt Date: 20130918
  Transmission Date: 20140515
  Serious: No
  Sender: FDA-Public Use
  Company Number: US-009507513-1309USA001665

PATIENT
  Sex: Male

DRUGS (1)
  1. MIRALAX [Suspect]
     Indication: PRODUCT USED FOR UNKNOWN INDICATION
     Dosage: 17 G, ONCE
     Route: 048

REACTIONS (1)
  - Expired drug administered [Unknown]
